FAERS Safety Report 6769019-X (Version None)
Quarter: 2010Q2

REPORT INFORMATION
  Report Type: 
  Country: None (occurrence: None)
  Receive Date: 20100615
  Receipt Date: 20100607
  Transmission Date: 20101027
  Serious: No
  Sender: FDA-Public Use
  Company Number: US-BIOGENIDEC-2010BI019335

PATIENT
  Age: 49 Year
  Sex: Female

DRUGS (1)
  1. TYSABRI [Suspect]
     Indication: MULTIPLE SCLEROSIS
     Route: 042
     Dates: start: 20091113

REACTIONS (6)
  - ASTHMA [None]
  - DYSPHAGIA [None]
  - FATIGUE [None]
  - PHARYNGITIS STREPTOCOCCAL [None]
  - RASH [None]
  - TOOTH DISORDER [None]
